FAERS Safety Report 25836786 (Version 1)
Quarter: 2025Q3

REPORT INFORMATION
  Report Type: Other
  Country: US (occurrence: US)
  Receive Date: 20250923
  Receipt Date: 20250923
  Transmission Date: 20251021
  Serious: Yes (Other)
  Sender: SIGMA TAU
  Company Number: US-LEADIANT GMBH-2024LBI000381

PATIENT
  Sex: Female

DRUGS (1)
  1. MATULANE [Suspect]
     Active Substance: PROCARBAZINE HYDROCHLORIDE
     Indication: Brain neoplasm malignant
     Route: 048
     Dates: start: 20240401

REACTIONS (5)
  - Dysphagia [Unknown]
  - Influenza like illness [Unknown]
  - Vomiting [Unknown]
  - Asthenia [Unknown]
  - Hemihypoaesthesia [Recovered/Resolved]
